FAERS Safety Report 10010481 (Version 1)
Quarter: 2014Q1

REPORT INFORMATION
  Report Type: Spontaneous
  Country: US (occurrence: US)
  Receive Date: 20140314
  Receipt Date: 20140314
  Transmission Date: 20141002
  Serious: Yes (Other)
  Sender: FDA-Public Use
  Company Number: US-BIOGENIDEC-2014BI020399

PATIENT
  Age: 52 Year
  Sex: Female

DRUGS (9)
  1. TECFIDERA [Suspect]
     Indication: MULTIPLE SCLEROSIS
     Route: 048
  2. AMLODIPINE BESYLATE [Concomitant]
  3. ATORVASTATIN CALCIUM [Concomitant]
  4. GABAPENTIN [Concomitant]
  5. GLIPIZIDE [Concomitant]
  6. METFORMIN HCI [Concomitant]
  7. OMEPRAZOLE [Concomitant]
  8. OXYCODONE HCI [Concomitant]
  9. POTASSIUM [Concomitant]

REACTIONS (4)
  - Convulsion [Unknown]
  - Influenza [Unknown]
  - Hirsutism [Unknown]
  - Alopecia [Unknown]
